FAERS Safety Report 8928238 (Version 1)
Quarter: 2012Q4

REPORT INFORMATION
  Report Type: 
  Country: AR (occurrence: AR)
  Receive Date: 20121128
  Receipt Date: 20121128
  Transmission Date: 20130627
  Serious: Yes (Death)
  Sender: FDA-Public Use
  Company Number: PHHY2012AR108320

PATIENT
  Sex: Male

DRUGS (1)
  1. DIOVAN [Suspect]
     Route: 048
     Dates: start: 2009

REACTIONS (3)
  - Cerebrovascular accident [Fatal]
  - Convulsion [Fatal]
  - Arterial occlusive disease [Fatal]
